FAERS Safety Report 6935334-X (Version None)
Quarter: 2010Q3

REPORT INFORMATION
  Report Type: 
  Country: None (occurrence: None)
  Receive Date: 20100823
  Receipt Date: 20100607
  Transmission Date: 20110219
  Serious: Yes (Hospitalization, Other)
  Sender: FDA-Public Use
  Company Number: US-BAYER-201017268NA

PATIENT
  Age: 37 Year
  Sex: Female
  Weight: 72 kg

DRUGS (9)
  1. YASMIN [Suspect]
     Indication: ACNE
     Dosage: 1 TABLET
     Route: 048
     Dates: start: 20081206, end: 20090425
  2. MAXAIR [Concomitant]
     Indication: PRODUCT USED FOR UNKNOWN INDICATION
     Dosage: USED THROUGHOUT LIFE
     Route: 065
  3. MULTI-VITAMIN [Concomitant]
     Indication: PRODUCT USED FOR UNKNOWN INDICATION
     Route: 065
  4. CALCIUM KONSYL 1 TSP. PER EVERYDAY [Concomitant]
     Indication: PRODUCT USED FOR UNKNOWN INDICATION
     Route: 065
  5. METHYLPREDNISOLONEDROL (PAK) [Concomitant]
     Indication: PRODUCT USED FOR UNKNOWN INDICATION
     Route: 065
     Dates: start: 20090416
  6. FISH OIL [Concomitant]
     Indication: PRODUCT USED FOR UNKNOWN INDICATION
     Route: 065
     Dates: start: 20090405, end: 20090425
  7. IBUPROFEN [Concomitant]
     Indication: PRODUCT USED FOR UNKNOWN INDICATION
     Dosage: ON AND OFF THROUGH ADULT LIFE
     Route: 065
  8. ALEVE (CAPLET) [Concomitant]
     Indication: PRODUCT USED FOR UNKNOWN INDICATION
     Dosage: ON AND OFF THROUGH ADULT LIFE
     Route: 065
  9. MAXAIR [Concomitant]
     Dosage: 200 MCG
     Route: 065

REACTIONS (1)
  - DEEP VEIN THROMBOSIS [None]
